FAERS Safety Report 10230379 (Version 3)
Quarter: 2014Q4

REPORT INFORMATION
  Report Type: Spontaneous
  Country: JP (occurrence: JP)
  Receive Date: 20140611
  Receipt Date: 20141014
  Transmission Date: 20150528
  Serious: Yes (Hospitalization)
  Sender: FDA-Public Use
  Company Number: JP-PFIZER INC-2014158532

PATIENT
  Age: 43 Year
  Sex: Male
  Weight: 70 kg

DRUGS (6)
  1. METHYCOBAL [Concomitant]
     Active Substance: METHYLCOBALAMIN
     Indication: NECK PAIN
     Dosage: UNK
     Dates: start: 20140224, end: 20140302
  2. VOLTAREN [Concomitant]
     Active Substance: DICLOFENAC SODIUM
     Indication: NECK PAIN
     Dosage: 50 MG
     Dates: start: 20140224
  3. NEUROTROPIN /00398601/ [Concomitant]
     Indication: NECK PAIN
     Dosage: UNK
     Dates: start: 20140224, end: 20140302
  4. LYRICA [Suspect]
     Active Substance: PREGABALIN
     Indication: NECK PAIN
     Dosage: 75 MG, 2X/DAY
     Route: 048
     Dates: start: 20140224, end: 20140302
  5. CELECOX [Suspect]
     Active Substance: CELECOXIB
     Indication: NECK PAIN
     Dosage: 100 MG, 2X/DAY
     Route: 048
     Dates: start: 20140224, end: 20140302
  6. MUCOSTA [Concomitant]
     Active Substance: REBAMIPIDE
     Indication: NECK PAIN
     Dosage: UNK
     Dates: start: 20140224, end: 20140302

REACTIONS (1)
  - Rash scarlatiniform [Recovering/Resolving]

NARRATIVE: CASE EVENT DATE: 20140304
